FAERS Safety Report 7040491-3 (Version None)
Quarter: 2010Q4

REPORT INFORMATION
  Report Type: 
  Country: None (occurrence: None)
  Receive Date: 20101012
  Receipt Date: 20101005
  Transmission Date: 20110411
  Serious: Yes (Death)
  Sender: FDA-Public Use
  Company Number: US-AMGEN-QUU443549

PATIENT
  Sex: Male

DRUGS (2)
  1. NPLATE [Suspect]
     Indication: THROMBOCYTOPENIA
     Dates: end: 20100724
  2. RITUXIMAB [Concomitant]
     Dates: start: 20100618

REACTIONS (2)
  - RENAL CELL CARCINOMA [None]
  - THROMBOCYTOPENIA [None]
